FAERS Safety Report 22620696 (Version 1)
Quarter: 2023Q2

REPORT INFORMATION
  Report Type: Spontaneous
  Country: ES (occurrence: ES)
  Receive Date: 20230620
  Receipt Date: 20230620
  Transmission Date: 20230722
  Serious: Yes (Other)
  Sender: FDA-Public Use
  Company Number: ES-PFIZER INC-PV202300105104

PATIENT
  Age: 36 Year
  Sex: Female

DRUGS (1)
  1. ADALIMUMAB [Suspect]
     Active Substance: ADALIMUMAB
     Indication: Myopic chorioretinal degeneration
     Dosage: UNK

REACTIONS (2)
  - Acute febrile neutrophilic dermatosis [Recovering/Resolving]
  - Off label use [Unknown]
